FAERS Safety Report 10537734 (Version 2)
Quarter: 2014Q4

REPORT INFORMATION
  Report Type: Spontaneous
  Country: BR (occurrence: BR)
  Receive Date: 20141023
  Receipt Date: 20141028
  Transmission Date: 20150529
  Serious: Yes (Hospitalization, Other)
  Sender: FDA-Public Use
  Company Number: BR-BAYER-2014-152278

PATIENT
  Age: 24 Year
  Sex: Female

DRUGS (1)
  1. YASMIN [Suspect]
     Active Substance: DROSPIRENONE\ETHINYL ESTRADIOL
     Indication: CONTRACEPTION
     Dosage: UNK
     Route: 048
     Dates: start: 201405, end: 20140819

REACTIONS (8)
  - Chest pain [None]
  - Inappropriate schedule of drug administration [None]
  - Pulmonary embolism [None]
  - Pain in extremity [None]
  - Pleural effusion [None]
  - Dyspnoea [None]
  - Fatigue [None]
  - Pain in extremity [None]

NARRATIVE: CASE EVENT DATE: 2014
